FAERS Safety Report 9690503 (Version 1)
Quarter: 2013Q4

REPORT INFORMATION
  Report Type: Spontaneous
  Country: AU (occurrence: AU)
  Receive Date: 20131115
  Receipt Date: 20131115
  Transmission Date: 20140711
  Serious: Yes (Other)
  Sender: FDA-Public Use
  Company Number: AU-PFIZER INC-2013323915

PATIENT
  Sex: 0

DRUGS (1)
  1. DILANTIN [Suspect]
     Dosage: 6 CAPSULES OF 100MG

REACTIONS (3)
  - Intentional drug misuse [Unknown]
  - Convulsion [Unknown]
  - Dysphagia [Unknown]
